FAERS Safety Report 4320976-0 (Version None)
Quarter: 2004Q1

REPORT INFORMATION
  Report Type: 
  Country: None (occurrence: None)
  Receive Date: 20040315
  Receipt Date: 20030819
  Transmission Date: 20041129
  Serious: Yes (Other)
  Sender: FDA-Public Use
  Company Number: PHEH2003US07254

PATIENT
  Age: 48 Year
  Sex: Male
  Weight: 89.8 kg

DRUGS (5)
  1. TRILEPTAL [Suspect]
     Indication: CONVULSION
     Dosage: 600 MG, TID, ORAL
     Route: 048
     Dates: start: 20000101
  2. LAMICTAL ^BURROUGHS WELCOME^ [Concomitant]
  3. MEGA MEN /CAN/ [Concomitant]
  4. (VITAMANS NOS) [Concomitant]
  5. TYLENOL (CAPLET) [Concomitant]

REACTIONS (2)
  - DYSPNOEA [None]
  - HYPONATRAEMIA [None]
